FAERS Safety Report 6972003-4 (Version None)
Quarter: 2010Q3

REPORT INFORMATION
  Report Type: 
  Country: None (occurrence: None)
  Receive Date: 20100908
  Receipt Date: 20100908
  Transmission Date: 20110219
  Serious: Yes (Disabling)
  Sender: FDA-Public Use
  Company Number: None

PATIENT
  Sex: Female
  Weight: 69.2 kg

DRUGS (1)
  1. LEVAQUIN [Suspect]
     Indication: DEVICE RELATED INFECTION
     Dates: start: 20091109

REACTIONS (2)
  - FALL [None]
  - TENDON RUPTURE [None]
